FAERS Safety Report 7407270-6 (Version None)
Quarter: 2011Q2

REPORT INFORMATION
  Report Type: 
  Country: None (occurrence: None)
  Receive Date: 20110411
  Receipt Date: 20110330
  Transmission Date: 20111010
  Serious: Yes (Other)
  Sender: FDA-Public Use
  Company Number: PHHY2010AU86196

PATIENT
  Sex: Female

DRUGS (4)
  1. ESATENOLOL [Concomitant]
     Indication: BLOOD CHOLESTEROL INCREASED
     Dosage: 10 MG, DAILY
     Route: 048
     Dates: start: 20060803
  2. FAMCICLOVIR [Concomitant]
     Dosage: 250 MG, UNK
     Route: 048
     Dates: start: 20010101
  3. ACLASTA [Suspect]
     Dosage: 5 MG
     Route: 042
     Dates: start: 20101101
  4. ZOCOR [Concomitant]
     Indication: BLOOD CHOLESTEROL INCREASED
     Dosage: 5 MG, DAILY
     Route: 048
     Dates: start: 20060803

REACTIONS (7)
  - MALAISE [None]
  - OCCIPITAL NEURALGIA [None]
  - HYPOTENSION [None]
  - SYNCOPE [None]
  - ARTHRALGIA [None]
  - HEADACHE [None]
  - BLOOD PRESSURE ABNORMAL [None]
